FAERS Safety Report 20558212 (Version 12)
Quarter: 2023Q4

REPORT INFORMATION
  Report Type: Report from Study
  Country: CO (occurrence: CO)
  Receive Date: 20220307
  Receipt Date: 20231009
  Transmission Date: 20240110
  Serious: Yes (Other)
  Sender: FDA-Public Use
  Company Number: CO-SA-2022SA069912

PATIENT
  Age: 58 Year
  Sex: Female
  Weight: 63 kg

DRUGS (15)
  1. IMIGLUCERASE [Suspect]
     Active Substance: IMIGLUCERASE
     Indication: Gaucher^s disease
     Dosage: 10 DF (VIALS), QOW
     Route: 042
     Dates: start: 20031001
  2. IMIGLUCERASE [Suspect]
     Active Substance: IMIGLUCERASE
     Dosage: 10 DF (VIALS), QOW
     Route: 042
  3. PREGABALIN [Suspect]
     Active Substance: PREGABALIN
     Indication: Back pain
     Dosage: 1 DF, HS
     Route: 048
  4. PREGABALIN [Suspect]
     Active Substance: PREGABALIN
     Indication: Headache
     Dosage: UNK, BID
  5. PREGABALIN [Suspect]
     Active Substance: PREGABALIN
     Indication: Neck pain
  6. PREGABALIN [Suspect]
     Active Substance: PREGABALIN
     Indication: Ear pain
  7. PREGABALIN [Suspect]
     Active Substance: PREGABALIN
     Indication: Chest pain
  8. PREGABALIN [Suspect]
     Active Substance: PREGABALIN
     Indication: Pain in extremity
  9. LOSARTAN [Concomitant]
     Active Substance: LOSARTAN
     Indication: Hypertension
     Dosage: 50 MG, Q12H
     Route: 048
  10. BECLOMETHASONE [Concomitant]
     Active Substance: BECLOMETHASONE
     Dosage: UNK
  11. LEVOTHYROXINE [Concomitant]
     Active Substance: LEVOTHYROXINE
     Indication: Hypothyroidism
     Dosage: 50 UG, QD
     Route: 065
  12. LEVOTHYROXINE [Concomitant]
     Active Substance: LEVOTHYROXINE
     Dosage: 100 UG, QD
     Route: 048
  13. AMOXICILLIN [Concomitant]
     Active Substance: AMOXICILLIN
     Dosage: UNK
  14. CODEINE [Concomitant]
     Active Substance: CODEINE
     Indication: Pain
     Dosage: UNK, PRN
  15. AMLODIPINE [Concomitant]
     Active Substance: AMLODIPINE BESYLATE
     Indication: Hypertension
     Dosage: 5 MG, QD
     Route: 048

REACTIONS (38)
  - Angina pectoris [Not Recovered/Not Resolved]
  - Deafness [Recovering/Resolving]
  - Arthralgia [Not Recovered/Not Resolved]
  - Somnolence [Recovered/Resolved]
  - Hypertension [Recovering/Resolving]
  - Back pain [Not Recovered/Not Resolved]
  - Headache [Recovered/Resolved]
  - Pruritus [Not Recovered/Not Resolved]
  - Nausea [Recovered/Resolved]
  - Heart rate increased [Unknown]
  - Headache [Not Recovered/Not Resolved]
  - Heart rate increased [Recovered/Resolved]
  - Facial pain [Recovering/Resolving]
  - Eye pain [Not Recovered/Not Resolved]
  - Neck pain [Not Recovered/Not Resolved]
  - Ear pain [Not Recovered/Not Resolved]
  - Inflammation [Not Recovered/Not Resolved]
  - Vision blurred [Recovered/Resolved]
  - Memory impairment [Unknown]
  - Speech disorder [Recovered/Resolved]
  - Dizziness postural [Recovering/Resolving]
  - Visual impairment [Not Recovered/Not Resolved]
  - Chest pain [Recovering/Resolving]
  - Somnolence [Recovered/Resolved]
  - Pain in extremity [Not Recovered/Not Resolved]
  - Gait disturbance [Unknown]
  - Arthralgia [Not Recovered/Not Resolved]
  - Hypoacusis [Recovering/Resolving]
  - Swelling face [Not Recovered/Not Resolved]
  - Eye irritation [Not Recovered/Not Resolved]
  - Tinnitus [Unknown]
  - Cough [Not Recovered/Not Resolved]
  - Headache [Not Recovered/Not Resolved]
  - Back pain [Not Recovered/Not Resolved]
  - Abdominal pain upper [Recovering/Resolving]
  - Diarrhoea [Recovered/Resolved]
  - Back pain [Recovering/Resolving]
  - Hypokinesia [Recovering/Resolving]

NARRATIVE: CASE EVENT DATE: 20220101
